FAERS Safety Report 6083179-8 (Version None)
Quarter: 2009Q1

REPORT INFORMATION
  Report Type: 
  Country: None (occurrence: None)
  Receive Date: 20090213
  Receipt Date: 20090213
  Transmission Date: 20090719
  Serious: Yes (Hospitalization)
  Sender: FDA-Public Use
  Company Number: None

PATIENT
  Age: 78 Year
  Sex: Female

DRUGS (1)
  1. ZOLPIDEM [Suspect]

REACTIONS (5)
  - FALL [None]
  - RESTLESSNESS [None]
  - SKIN LACERATION [None]
  - SOMNAMBULISM [None]
  - TRAUMATIC BRAIN INJURY [None]
